FAERS Safety Report 13818637 (Version 1)
Quarter: 2017Q3

REPORT INFORMATION
  Report Type: Report from Study
  Country: BR (occurrence: BR)
  Receive Date: 20170801
  Receipt Date: 20170801
  Transmission Date: 20171127
  Serious: Yes (Other)
  Sender: FDA-Public Use
  Company Number: PHHY2017BR112105

PATIENT
  Sex: Male
  Weight: 73 kg

DRUGS (1)
  1. EXFORGE HCT [Suspect]
     Active Substance: AMLODIPINE BESYLATE\HYDROCHLOROTHIAZIDE\VALSARTAN
     Indication: HYPERTENSION
     Dosage: 1 DF (AMLODIPINE UNKNOWN, HYDROCHLOROTHIAZIDE UNKNOWN AND VALSARTAN 160 MG), QD
     Route: 048

REACTIONS (4)
  - Scleral oedema [Recovering/Resolving]
  - Hypoacusis [Recovering/Resolving]
  - Ocular hyperaemia [Recovering/Resolving]
  - Gingival bleeding [Recovering/Resolving]
